FAERS Safety Report 20700570 (Version 3)
Quarter: 2022Q2

REPORT INFORMATION
  Report Type: Spontaneous
  Country: US (occurrence: US)
  Receive Date: 20220412
  Receipt Date: 20220426
  Transmission Date: 20220721
  Serious: No
  Sender: FDA-Public Use
  Company Number: US-GLAXOSMITHKLINE-US2022AMR061012

PATIENT
  Age: 61 Year
  Sex: Female

DRUGS (5)
  1. ZEJULA [Suspect]
     Active Substance: NIRAPARIB
     Indication: Fallopian tube cancer
     Dosage: 100 MG, TID (03 TAB)
     Dates: start: 20220404
  2. ZEJULA [Suspect]
     Active Substance: NIRAPARIB
     Dosage: 100 MG, TID (03 TAB)
  3. ZEJULA [Suspect]
     Active Substance: NIRAPARIB
     Dosage: 300 MG
  4. ZEJULA [Suspect]
     Active Substance: NIRAPARIB
     Dosage: 300 MG
  5. ZEJULA [Suspect]
     Active Substance: NIRAPARIB
     Dosage: 300 MG, QD

REACTIONS (11)
  - Insomnia [Unknown]
  - Urinary hesitation [Unknown]
  - Dry mouth [Unknown]
  - Inappropriate schedule of product administration [Unknown]
  - Product dose omission issue [Unknown]
  - Constipation [Unknown]
  - Decreased appetite [Unknown]
  - Weight increased [Unknown]
  - Musculoskeletal stiffness [Unknown]
  - Headache [Unknown]
  - Sinus disorder [Unknown]

NARRATIVE: CASE EVENT DATE: 20220401
